FAERS Safety Report 8790810 (Version 1)
Quarter: 2012Q4

REPORT INFORMATION
  Report Type: Spontaneous
  Country: US (occurrence: None)
  Receive Date: 20120912
  Receipt Date: 20120912
  Transmission Date: 20130627
  Serious: No
  Sender: FDA-Public Use
  Company Number: None

PATIENT
  Age: 75 Year
  Sex: Male
  Weight: 67.9 kg

DRUGS (1)
  1. DABIGATRAN [Suspect]
     Indication: DIARRHEA
     Route: 048
     Dates: start: 20120124, end: 20120207

REACTIONS (1)
  - Diarrhoea [None]
